FAERS Safety Report 15094484 (Version 1)
Quarter: 2018Q2

REPORT INFORMATION
  Report Type: Report from Study
  Country: US (occurrence: US)
  Receive Date: 20180630
  Receipt Date: 20180630
  Transmission Date: 20180711
  Serious: No
  Sender: FDA-Public Use
  Company Number: PHEH2018US025718

PATIENT
  Age: 70 Year
  Sex: Female

DRUGS (1)
  1. TRAVATAN Z [Suspect]
     Active Substance: TRAVOPROST
     Route: 047

REACTIONS (5)
  - Eye irritation [Unknown]
  - Eye pain [Unknown]
  - Eye discharge [Unknown]
  - Visual impairment [Unknown]
  - Pigmentation disorder [Unknown]
